FAERS Safety Report 16460467 (Version 1)
Quarter: 2019Q2

REPORT INFORMATION
  Report Type: Report from Study
  Country: None (occurrence: FR)
  Receive Date: 20190620
  Receipt Date: 20190620
  Transmission Date: 20190711
  Serious: Yes (Other)
  Sender: FDA-Public Use
  Company Number: FR-ABBVIE-19K-056-2821637-00

PATIENT

DRUGS (3)
  1. HUMIRA [Suspect]
     Active Substance: ADALIMUMAB
     Indication: GASTROINTESTINAL DISORDER
     Dosage: FOUR INJECTIONS
     Route: 058
     Dates: start: 201811
  2. HUMIRA [Suspect]
     Active Substance: ADALIMUMAB
     Route: 058
  3. HUMIRA [Suspect]
     Active Substance: ADALIMUMAB
     Dosage: TWO INJECTIONS
     Route: 058

REACTIONS (9)
  - Gastrointestinal disorder [Unknown]
  - Hypophagia [Unknown]
  - Taste disorder [Unknown]
  - Mouth swelling [Unknown]
  - Therapeutic product effect decreased [Unknown]
  - Stomatitis haemorrhagic [Unknown]
  - Mouth haemorrhage [Unknown]
  - Aphthous ulcer [Unknown]
  - Product prescribing error [Unknown]
